FAERS Safety Report 5490409-X (Version None)
Quarter: 2007Q4

REPORT INFORMATION
  Report Type: 
  Country: None (occurrence: None)
  Receive Date: 20071019
  Receipt Date: 20071011
  Transmission Date: 20080405
  Serious: Yes (Death, Other)
  Sender: FDA-Public Use
  Company Number: PHBS2007JP09857

PATIENT
  Age: 102 Year
  Sex: Female
  Weight: 34 kg

DRUGS (7)
  1. GLEEVEC [Suspect]
     Indication: CHRONIC MYELOID LEUKAEMIA
     Dosage: 100 MG/D
     Route: 048
     Dates: start: 20050713, end: 20070430
  2. GLEEVEC [Suspect]
     Dosage: 200 MG/D
     Route: 048
     Dates: start: 20070501, end: 20070607
  3. GLEEVEC [Suspect]
     Dosage: 100 MG/D
     Route: 048
     Dates: start: 20070608, end: 20070705
  4. GLEEVEC [Suspect]
     Dosage: 200 MG, QD
     Route: 048
     Dates: start: 20070706, end: 20070725
  5. GLEEVEC [Suspect]
     Dosage: 100 MG, QD
     Route: 048
     Dates: start: 20070726, end: 20070823
  6. GLEEVEC [Suspect]
     Dosage: 200 MG, QD
     Route: 048
     Dates: start: 20070824, end: 20070903
  7. HYDREA [Concomitant]
     Indication: CHRONIC MYELOID LEUKAEMIA
     Route: 048
     Dates: end: 20050701

REACTIONS (12)
  - BLOOD CREATININE ABNORMAL [None]
  - BONE PAIN [None]
  - CREATININE RENAL CLEARANCE [None]
  - HAEMATOCRIT DECREASED [None]
  - HAEMOGLOBIN DECREASED [None]
  - HYPERCALCAEMIA [None]
  - HYPONATRAEMIA [None]
  - MARASMUS [None]
  - NORMOCHROMIC NORMOCYTIC ANAEMIA [None]
  - RED BLOOD CELL COUNT DECREASED [None]
  - RENAL FAILURE ACUTE [None]
  - SOMNOLENCE [None]
